FAERS Safety Report 8434851-3 (Version None)
Quarter: 2012Q2

REPORT INFORMATION
  Report Type: 
  Country: None (occurrence: None)
  Receive Date: 20120608
  Receipt Date: 20120525
  Transmission Date: 20120825
  Serious: Yes (Other)
  Sender: FDA-Public Use
  Company Number: 2012P1035615

PATIENT

DRUGS (1)
  1. DIGOXIN [Suspect]

REACTIONS (2)
  - RESTLESSNESS [None]
  - CARDIAC FAILURE CONGESTIVE [None]
